FAERS Safety Report 8958661 (Version 1)
Quarter: 2012Q4

REPORT INFORMATION
  Report Type: Spontaneous
  Country: GB (occurrence: None)
  Receive Date: 20121128
  Receipt Date: 20121128
  Transmission Date: 20130627
  Serious: Yes (Other)
  Sender: FDA-Public Use
  Company Number: 2012-20209

PATIENT
  Age: 46 Year
  Sex: Male

DRUGS (2)
  1. CITALOPRAM HYDROBROMIDE [Suspect]
     Indication: DEPRESSION
     Dosage: initially 10 mg daily increased for past 10 months to 20 mg daily. Taken for 1 year in total, Unknown
  2. ZOPICLONE (UNKNOWN) [Suspect]
     Indication: DRUG USE FOR UNKNOWN INDICATION
     Dosage: drug use not sated strength 7.5 mg. Unknown
     Dates: start: 201210

REACTIONS (2)
  - Mania [None]
  - Unevaluable event [None]
